FAERS Safety Report 4330369-8 (Version None)
Quarter: 2004Q2

REPORT INFORMATION
  Report Type: 
  Country: None (occurrence: None)
  Receive Date: 20040401
  Receipt Date: 20040401
  Transmission Date: 20050107
  Serious: Yes (Other)
  Sender: FDA-Public Use
  Company Number: None

PATIENT
  Age: 19 Year
  Sex: Male
  Weight: 70.3075 kg

DRUGS (1)
  1. ZOLOFT [Suspect]
     Indication: DEPRESSION
     Dosage: 100 MG 1 X PER DA ORAL
     Route: 048
     Dates: start: 20030915, end: 20031215

REACTIONS (7)
  - AGGRESSION [None]
  - ANGER [None]
  - BIPOLAR I DISORDER [None]
  - LEGAL PROBLEM [None]
  - MOOD SWINGS [None]
  - PARAESTHESIA [None]
  - TREATMENT NONCOMPLIANCE [None]
